FAERS Safety Report 22240468 (Version 1)
Quarter: 2023Q2

REPORT INFORMATION
  Report Type: Spontaneous
  Country: US (occurrence: None)
  Receive Date: 20230421
  Receipt Date: 20230421
  Transmission Date: 20230721
  Serious: Yes (Disabling)
  Sender: FDA-Public Use
  Company Number: None

PATIENT
  Age: 60 Year
  Sex: Female

DRUGS (1)
  1. MONTELUKAST [Suspect]
     Active Substance: MONTELUKAST SODIUM

REACTIONS (6)
  - Depression [None]
  - Suicidal ideation [None]
  - Suicide attempt [None]
  - Nightmare [None]
  - Agitation [None]
  - Aggression [None]
